FAERS Safety Report 10026052 (Version 1)
Quarter: 2014Q1

REPORT INFORMATION
  Report Type: Spontaneous
  Country: IT (occurrence: IT)
  Receive Date: 20140320
  Receipt Date: 20140320
  Transmission Date: 20141002
  Serious: Yes (Hospitalization)
  Sender: FDA-Public Use
  Company Number: IT-MYLANLABS-2014S1005284

PATIENT
  Age: 29 Year
  Sex: Male

DRUGS (6)
  1. AMOXI-CLAVULANICO [Suspect]
     Indication: TONSILLITIS
     Route: 065
  2. IBUPROFEN [Suspect]
     Route: 065
  3. PARACETAMOL [Suspect]
     Route: 065
  4. DIPYRONE [Suspect]
     Route: 065
  5. CEFIXIME [Concomitant]
     Route: 065
  6. KETOPROFEN [Concomitant]
     Route: 065

REACTIONS (1)
  - Acute generalised exanthematous pustulosis [Recovering/Resolving]
